FAERS Safety Report 10439838 (Version 1)
Quarter: 2014Q3

REPORT INFORMATION
  Report Type: Spontaneous
  Country: US (occurrence: US)
  Receive Date: 20140908
  Receipt Date: 20140908
  Transmission Date: 20150326
  Serious: No
  Sender: FDA-Public Use
  Company Number: US-BRISTOL-MYERS SQUIBB COMPANY-20037685

PATIENT
  Age: 58 Year
  Sex: Female
  Weight: 86.17 kg

DRUGS (6)
  1. HYDROCODONE [Concomitant]
     Active Substance: HYDROCODONE
     Dosage: TABS
  2. CELEBREX [Concomitant]
     Active Substance: CELECOXIB
     Dosage: OCCASIONALLY
  3. ABILIFY [Suspect]
     Active Substance: ARIPIPRAZOLE
     Indication: DEPRESSION
  4. FENTANYL TRANSDERMAL SYSTEM [Concomitant]
     Active Substance: FENTANYL
     Indication: PAIN
  5. VALIUM [Concomitant]
     Active Substance: DIAZEPAM
     Dosage: 2 TABLETS
  6. NEURONTIN [Concomitant]
     Active Substance: GABAPENTIN

REACTIONS (1)
  - Dyskinesia [Unknown]
